FAERS Safety Report 14944238 (Version 1)
Quarter: 2018Q2

REPORT INFORMATION
  Report Type: Spontaneous
  Country: GR (occurrence: GR)
  Receive Date: 20180528
  Receipt Date: 20180528
  Transmission Date: 20180711
  Serious: Yes (Other)
  Sender: FDA-Public Use
  Company Number: PHHY2018GR007804

PATIENT
  Age: 58 Year
  Sex: Female

DRUGS (5)
  1. AMPICILLIN [Concomitant]
     Active Substance: AMPICILLIN
     Indication: NEISSERIA TEST POSITIVE
     Route: 065
  2. VANCOMYCIN [Concomitant]
     Active Substance: VANCOMYCIN
     Indication: NEISSERIA TEST POSITIVE
     Route: 065
  3. CEFTRIAXONE. [Concomitant]
     Active Substance: CEFTRIAXONE
     Indication: NEISSERIA TEST POSITIVE
     Route: 065
  4. DEXAMETHASONE. [Suspect]
     Active Substance: DEXAMETHASONE
     Indication: NEISSERIA TEST POSITIVE
     Route: 065
  5. MANNITOL. [Concomitant]
     Active Substance: MANNITOL
     Indication: NEISSERIA TEST POSITIVE
     Route: 065

REACTIONS (3)
  - Quadriplegia [Recovering/Resolving]
  - Intensive care unit acquired weakness [Recovering/Resolving]
  - Muscle disorder [Recovering/Resolving]
